FAERS Safety Report 24698528 (Version 1)
Quarter: 2024Q4

REPORT INFORMATION
  Report Type: Report from Study
  Country: CO (occurrence: CO)
  Receive Date: 20241204
  Receipt Date: 20241204
  Transmission Date: 20250114
  Serious: Yes (Hospitalization)
  Sender: ABBVIE
  Company Number: CO-ABBVIE-6024909

PATIENT
  Age: 71 Year
  Sex: Male
  Weight: 69 kg

DRUGS (3)
  1. HUMIRA [Suspect]
     Active Substance: ADALIMUMAB
     Indication: Ankylosing spondylitis
     Dosage: FORM STRENGTH: 40 MILLIGRAM
     Route: 058
     Dates: start: 20200120
  2. HUMIRA [Suspect]
     Active Substance: ADALIMUMAB
     Dosage: FORM STRENGTH: 40 MILLIGRAM
     Route: 058
     Dates: start: 20241120
  3. YUFLYMA [Suspect]
     Active Substance: ADALIMUMAB-AATY
     Indication: Product used for unknown indication
     Dosage: 1 SINGLE DOSE, (ADALIMUMAB)
     Route: 058
     Dates: start: 20241107, end: 20241107

REACTIONS (11)
  - Ischaemia [Recovered/Resolved]
  - Chest pain [Not Recovered/Not Resolved]
  - Back pain [Unknown]
  - Uveitis [Not Recovered/Not Resolved]
  - Gait disturbance [Not Recovered/Not Resolved]
  - Dizziness [Not Recovered/Not Resolved]
  - Arthralgia [Not Recovered/Not Resolved]
  - Ischaemia [Recovered/Resolved]
  - Bone marrow oedema [Unknown]
  - Bone pain [Not Recovered/Not Resolved]
  - Cerebrovascular accident [Recovered/Resolved]

NARRATIVE: CASE EVENT DATE: 20211218
